FAERS Safety Report 6262186-6 (Version None)
Quarter: 2009Q3

REPORT INFORMATION
  Report Type: 
  Country: None (occurrence: None)
  Receive Date: 20090709
  Receipt Date: 20090703
  Transmission Date: 20100115
  Serious: Yes (Disabling)
  Sender: FDA-Public Use
  Company Number: FR-MERCK-0907USA00657

PATIENT
  Age: 68 Year
  Sex: Female

DRUGS (6)
  1. ZOCOR [Suspect]
     Indication: DYSLIPIDAEMIA
     Route: 048
     Dates: start: 20040101
  2. KARDEGIC [Suspect]
     Indication: THROMBOSIS PROPHYLAXIS
     Route: 048
     Dates: start: 20071022, end: 20080517
  3. THALIDOMIDE [Suspect]
     Indication: MULTIPLE MYELOMA
     Route: 048
     Dates: start: 20071022, end: 20080517
  4. ALKERAN [Suspect]
     Indication: MULTIPLE MYELOMA
     Route: 048
     Dates: start: 20070601, end: 20080517
  5. MORPHINE [Concomitant]
     Indication: SPINAL COMPRESSION FRACTURE
     Route: 048
     Dates: start: 20050101, end: 20080517
  6. DEXAMETHASONE [Concomitant]
     Indication: MULTIPLE MYELOMA
     Route: 048
     Dates: start: 20080411, end: 20080517

REACTIONS (2)
  - DYSAESTHESIA [None]
  - PARAESTHESIA [None]
